FAERS Safety Report 19122740 (Version 1)
Quarter: 2021Q2

REPORT INFORMATION
  Report Type: Spontaneous
  Country: US (occurrence: US)
  Receive Date: 20210412
  Receipt Date: 20210412
  Transmission Date: 20210717
  Serious: No
  Sender: FDA-Public Use
  Company Number: NVSC2021US081551

PATIENT
  Age: 39 Year
  Sex: Male

DRUGS (1)
  1. XIIDRA [Suspect]
     Active Substance: LIFITEGRAST
     Indication: PRODUCT USED FOR UNKNOWN INDICATION
     Dosage: 1 DRP, BID (ONE DROP PER EYE)
     Route: 065
     Dates: start: 20201210, end: 20210405

REACTIONS (1)
  - Chalazion [Unknown]

NARRATIVE: CASE EVENT DATE: 202103
